FAERS Safety Report 12914268 (Version 1)
Quarter: 2016Q4

REPORT INFORMATION
  Report Type: Other
  Country: US (occurrence: US)
  Receive Date: 20161106
  Receipt Date: 20161106
  Transmission Date: 20170207
  Serious: No
  Sender: FDA-Public Use
  Company Number: US-GLENMARK PHARMACEUTICALS INC, USA.-2016GMK023478

PATIENT

DRUGS (1)
  1. BETAMETHASONE DIPROPIONATE. [Suspect]
     Active Substance: BETAMETHASONE DIPROPIONATE
     Indication: ECZEMA
     Dosage: UNK, AS NEEDED, THREE OR FOUR TIMES A DAY
     Route: 061
     Dates: start: 201604

REACTIONS (3)
  - No adverse event [Unknown]
  - Drug ineffective for unapproved indication [Unknown]
  - Product packaging issue [Unknown]

NARRATIVE: CASE EVENT DATE: 201604
